FAERS Safety Report 10442309 (Version 1)
Quarter: 2014Q3

REPORT INFORMATION
  Report Type: Spontaneous
  Country: US (occurrence: US)
  Receive Date: 20140909
  Receipt Date: 20140909
  Transmission Date: 20150326
  Serious: Yes (Hospitalization)
  Sender: FDA-Public Use
  Company Number: US-TEVA-506753USA

PATIENT
  Sex: Female

DRUGS (1)
  1. FENTORA [Suspect]
     Active Substance: FENTANYL CITRATE
     Route: 065

REACTIONS (1)
  - Surgery [Unknown]
